FAERS Safety Report 6805186-7 (Version None)
Quarter: 2010Q2

REPORT INFORMATION
  Report Type: 
  Country: None (occurrence: None)
  Receive Date: 20100628
  Receipt Date: 20071018
  Transmission Date: 20101027
  Serious: No
  Sender: FDA-Public Use
  Company Number: US-PFIZER INC-2007065564

PATIENT
  Age: 27 Year
  Sex: Female

DRUGS (5)
  1. GEODON [Suspect]
     Indication: SCHIZOAFFECTIVE DISORDER
     Dates: start: 20050901
  2. CLOZAPINE [Concomitant]
  3. KLONOPIN [Concomitant]
     Route: 048
  4. TOPAMAX [Concomitant]
     Route: 048
  5. CILEST [Concomitant]

REACTIONS (4)
  - AMENORRHOEA [None]
  - BLOOD PROLACTIN INCREASED [None]
  - GALACTORRHOEA [None]
  - SEDATION [None]
